FAERS Safety Report 12595295 (Version 1)
Quarter: 2016Q3

REPORT INFORMATION
  Report Type: Spontaneous
  Country: US (occurrence: US)
  Receive Date: 20160727
  Receipt Date: 20160727
  Transmission Date: 20161109
  Serious: No
  Sender: FDA-Public Use
  Company Number: US-TEVA-672721ACC

PATIENT
  Age: 19 Year
  Sex: Female
  Weight: 70.37 kg

DRUGS (2)
  1. NADOLOL. [Concomitant]
     Active Substance: NADOLOL
     Indication: ELECTROCARDIOGRAM QT PROLONGED
  2. PLAN B ONE-STEP [Suspect]
     Active Substance: LEVONORGESTREL
     Indication: POST COITAL CONTRACEPTION
     Dates: start: 20160625, end: 20160625

REACTIONS (2)
  - Menstruation delayed [Not Recovered/Not Resolved]
  - Off label use [Unknown]

NARRATIVE: CASE EVENT DATE: 20160625
